FAERS Safety Report 15020134 (Version 1)
Quarter: 2018Q2

REPORT INFORMATION
  Report Type: Report from Study
  Country: AR (occurrence: AR)
  Receive Date: 20180618
  Receipt Date: 20180618
  Transmission Date: 20180711
  Serious: Yes (Life-Threatening)
  Sender: FDA-Public Use
  Company Number: AR-ROCHE-2138367

PATIENT
  Age: 60 Year
  Sex: Female

DRUGS (1)
  1. XOLAIR [Suspect]
     Active Substance: OMALIZUMAB
     Indication: ASTHMA
     Route: 065
     Dates: start: 20180222

REACTIONS (12)
  - Urticaria [Unknown]
  - Drug intolerance [Unknown]
  - Pyrexia [Unknown]
  - Bronchitis [Unknown]
  - Feeling abnormal [Unknown]
  - Depressed mood [Unknown]
  - Secretion discharge [Not Recovered/Not Resolved]
  - Respiratory tract congestion [Unknown]
  - Agitation [Unknown]
  - Malaise [Unknown]
  - Fatigue [Recovering/Resolving]
  - Dysphonia [Not Recovered/Not Resolved]

NARRATIVE: CASE EVENT DATE: 20180222
